FAERS Safety Report 7657551-6 (Version None)
Quarter: 2011Q3

REPORT INFORMATION
  Report Type: 
  Country: None (occurrence: None)
  Receive Date: 20110804
  Receipt Date: 20110727
  Transmission Date: 20111222
  Serious: Yes (Life-Threatening, Hospitalization)
  Sender: FDA-Public Use
  Company Number: DE-AMGEN-DEUCT2011026726

PATIENT
  Age: 52 Year
  Sex: Male
  Weight: 71 kg

DRUGS (7)
  1. ETANERCEPT [Suspect]
     Dosage: 50 MG EVERY 9 DAYS
     Route: 058
     Dates: start: 20100923
  2. IBUPROFEN [Concomitant]
     Indication: RHEUMATOID ARTHRITIS
     Dosage: 800 MG, 2X/DAY
     Route: 048
     Dates: start: 20021001
  3. PREDNISOLONE [Concomitant]
     Indication: RHEUMATOID ARTHRITIS
     Dosage: 10 MG, 1X/DAY
     Route: 048
     Dates: start: 20000701, end: 20100501
  4. PREDNISOLONE [Concomitant]
     Dosage: 5 MG, 1X/DAY
     Route: 048
     Dates: start: 20100501
  5. ETANERCEPT [Suspect]
     Dosage: 50 MG, EVERY EIGHT DAYS
     Route: 058
     Dates: start: 20100819, end: 20100922
  6. ARAVA [Suspect]
     Indication: RHEUMATOID ARTHRITIS
     Dosage: 20 MG, 1X/DAY
     Route: 048
     Dates: start: 20060201
  7. ETANERCEPT [Suspect]
     Indication: RHEUMATOID ARTHRITIS
     Dosage: 50 MG, QWK
     Route: 058
     Dates: start: 20100202, end: 20100818

REACTIONS (4)
  - DIVERTICULAR PERFORATION [None]
  - ABSCESS INTESTINAL [None]
  - COLOSTOMY CLOSURE [None]
  - DIVERTICULITIS [None]
